FAERS Safety Report 5797084-5 (Version None)
Quarter: 2008Q3

REPORT INFORMATION
  Report Type: 
  Country: None (occurrence: None)
  Receive Date: 20080701
  Receipt Date: 20080624
  Transmission Date: 20090109
  Serious: Yes (Hospitalization)
  Sender: FDA-Public Use
  Company Number: JP-WATSON-2008-03826

PATIENT
  Age: 62 Year
  Sex: Female

DRUGS (2)
  1. METHYLPHENIDATE HYDROCHLORIDE [Suspect]
     Indication: MAJOR DEPRESSION
     Dosage: 10 MG, UNK
     Route: 065
  2. SERTRALINE HYDROCHLORIDE [Suspect]
     Indication: MAJOR DEPRESSION
     Dosage: DOSES INCREASING TO 100MG
     Route: 065

REACTIONS (2)
  - POTENTIATING DRUG INTERACTION [None]
  - SEROTONIN SYNDROME [None]
